FAERS Safety Report 8186328-0 (Version None)
Quarter: 2012Q1

REPORT INFORMATION
  Report Type: 
  Country: None (occurrence: None)
  Receive Date: 20120306
  Receipt Date: 20120227
  Transmission Date: 20120608
  Serious: Yes (Hospitalization, Other)
  Sender: FDA-Public Use
  Company Number: US-BAYER-2011-060907

PATIENT
  Age: 24 Year
  Sex: Female
  Weight: 72.109 kg

DRUGS (1)
  1. YASMIN [Suspect]
     Indication: ENDOMETRIOSIS
     Dosage: UNK
     Dates: start: 20050101, end: 20060627

REACTIONS (13)
  - HYPERAESTHESIA [None]
  - EMOTIONAL DISTRESS [None]
  - ANXIETY [None]
  - GAIT DISTURBANCE [None]
  - PAIN IN EXTREMITY [None]
  - DEEP VEIN THROMBOSIS [None]
  - MOBILITY DECREASED [None]
  - FEAR [None]
  - PAIN [None]
  - OEDEMA PERIPHERAL [None]
  - INJURY [None]
  - MUSCLE FATIGUE [None]
  - SKIN DISCOLOURATION [None]
